FAERS Safety Report 7621048-X (Version None)
Quarter: 2011Q3

REPORT INFORMATION
  Report Type: 
  Country: None (occurrence: None)
  Receive Date: 20110719
  Receipt Date: 20110315
  Transmission Date: 20111222
  Serious: No
  Sender: FDA-Public Use
  Company Number: US-KINGPHARMUSA00001-K201100284

PATIENT
  Sex: Male

DRUGS (2)
  1. LEVOXYL [Suspect]
     Indication: THYROIDECTOMY
     Dosage: 150 MCG, UNK
     Route: 048
     Dates: start: 20110110, end: 20110201
  2. LEVOXYL [Suspect]
     Dosage: 175 MCG, UNK
     Route: 048
     Dates: start: 20110201

REACTIONS (2)
  - PALPITATIONS [None]
  - BLOOD THYROID STIMULATING HORMONE INCREASED [None]
